FAERS Safety Report 6654013-X (Version None)
Quarter: 2010Q1

REPORT INFORMATION
  Report Type: 
  Country: None (occurrence: None)
  Receive Date: 20100324
  Receipt Date: 20100311
  Transmission Date: 20100710
  Serious: Yes (Hospitalization)
  Sender: FDA-Public Use
  Company Number: CIP10000567

PATIENT
  Sex: Female

DRUGS (4)
  1. ACTONEL [Suspect]
     Indication: OSTEOPOROSIS
     Dosage: 35 MG ONCE WEEKLY, ORAL
     Route: 048
     Dates: start: 20090301, end: 20090701
  2. OSCAL D /00944201/ (CALCIUM CARBONATE, COLECALCIFEROL) [Concomitant]
  3. CARBAMAZEPINE [Concomitant]
  4. DIGOXIN [Concomitant]

REACTIONS (2)
  - AORTIC VALVE DISEASE [None]
  - SWELLING [None]
